FAERS Safety Report 10602766 (Version 2)
Quarter: 2015Q1

REPORT INFORMATION
  Report Type: Spontaneous
  Country: JP (occurrence: JP)
  Receive Date: 20141124
  Receipt Date: 20150126
  Transmission Date: 20150720
  Serious: Yes (Hospitalization)
  Sender: FDA-Public Use
  Company Number: JP-009507513-1411JPN008152

PATIENT
  Age: 25 Year
  Sex: Female

DRUGS (6)
  1. BELSOMRA [Suspect]
     Active Substance: SUVOREXANT
     Indication: INSOMNIA
     Dosage: 20 MG, SHORTLY BEFORE BEDTIME
     Route: 048
     Dates: start: 201411
  2. HALCION [Suspect]
     Active Substance: TRIAZOLAM
     Indication: INSOMNIA
     Dosage: 0.25 MG, AT BEDTIME
     Route: 048
  3. CALCIUM CARBIMIDE [Suspect]
     Active Substance: CALCIUM CARBIMIDE
     Indication: ALCOHOLISM
     Dosage: DAILY DOSAGE UNKNOWN; AFTER BREAKFAST AND SUPPER RESPECTIVELY
     Route: 048
  4. AMOBAN [Suspect]
     Active Substance: ZOPICLONE
     Indication: INSOMNIA
     Dosage: 7.5 MG, AT BEDTIME
     Route: 048
  5. ABILIFY [Suspect]
     Active Substance: ARIPIPRAZOLE
     Indication: SCHIZOPHRENIA
     Dosage: 3 MG, AFTER BREAKFAST, LUNCH AND SUPPER RESPECTIVELY
     Route: 048
  6. RISPERDAL [Suspect]
     Active Substance: RISPERIDONE
     Indication: SCHIZOPHRENIA
     Dosage: 2 MG, AT BEDTIME
     Route: 048

REACTIONS (1)
  - Psychotic disorder [Recovered/Resolved]

NARRATIVE: CASE EVENT DATE: 20141113
